FAERS Safety Report 9249432 (Version 2)
Quarter: 2013Q2

REPORT INFORMATION
  Report Type: Spontaneous
  Country: US (occurrence: US)
  Receive Date: 20130423
  Receipt Date: 20130503
  Transmission Date: 20140414
  Serious: Yes (Congenital Anomaly)
  Sender: FDA-Public Use
  Company Number: US-GLAXOSMITHKLINE-A1020783A

PATIENT
  Age: 0 Year
  Sex: Female
  Weight: 3.2 kg

DRUGS (3)
  1. PAXIL [Suspect]
     Indication: PRODUCT USED FOR UNKNOWN INDICATION
     Route: 064
  2. BENADRYL [Concomitant]
  3. ZITHROMAX [Concomitant]

REACTIONS (5)
  - Cardiac disorder [Unknown]
  - Cardiac murmur [Unknown]
  - Neoplasm [Unknown]
  - Genital labial adhesions [Unknown]
  - Foetal exposure during pregnancy [Unknown]
